FAERS Safety Report 9856313 (Version 2)
Quarter: 2014Q1

REPORT INFORMATION
  Report Type: Report from Study
  Country: BD (occurrence: BD)
  Receive Date: 20140130
  Receipt Date: 20140130
  Transmission Date: 20141002
  Serious: Yes (Death, Hospitalization)
  Sender: FDA-Public Use
  Company Number: PHHY2014BD007205

PATIENT
  Age: 33 Year
  Sex: Male
  Weight: 45 kg

DRUGS (2)
  1. ACLASTA [Suspect]
     Indication: OSTEOPOROSIS
     Dosage: 5 MG IN 100 ML
     Route: 042
     Dates: start: 20100710
  2. ACLASTA [Suspect]
     Dosage: 5 MG IN 100ML
     Route: 042
     Dates: start: 20110711

REACTIONS (3)
  - Dengue fever [Fatal]
  - Renal disorder [Fatal]
  - Feeling abnormal [Unknown]
